FAERS Safety Report 16993998 (Version 1)
Quarter: 2019Q4

REPORT INFORMATION
  Report Type: Spontaneous
  Country: US (occurrence: US)
  Receive Date: 20190924
  Receipt Date: 20190924
  Transmission Date: 20200122
  Serious: No
  Sender: FDA-Public Use
  Company Number: None

PATIENT
  Age: 79 Year
  Sex: Female

DRUGS (1)
  1. MAYZENT [Suspect]
     Active Substance: SIPONIMOD
     Route: 048
     Dates: start: 20190711

REACTIONS (4)
  - Insomnia [None]
  - Urinary tract infection [None]
  - Muscular weakness [None]
  - Dementia [None]

NARRATIVE: CASE EVENT DATE: 20190924
